FAERS Safety Report 18156425 (Version 5)
Quarter: 2025Q2

REPORT INFORMATION
  Report Type: Spontaneous
  Country: US (occurrence: US)
  Receive Date: 20200817
  Receipt Date: 20250421
  Transmission Date: 20250717
  Serious: No
  Sender: PFIZER
  Company Number: US-PFIZER INC-2020313556

PATIENT
  Age: 52 Year
  Sex: Female

DRUGS (32)
  1. XELJANZ XR [Suspect]
     Active Substance: TOFACITINIB CITRATE
     Indication: Psoriasis
     Dosage: 11 MG, 1X/DAY
     Route: 048
     Dates: start: 202004
  2. XELJANZ XR [Suspect]
     Active Substance: TOFACITINIB CITRATE
     Indication: Rheumatoid arthritis
     Dosage: 11 MG, DAILY
     Route: 048
     Dates: start: 202004
  3. XELJANZ XR [Suspect]
     Active Substance: TOFACITINIB CITRATE
     Dates: start: 20210618
  4. FAMOTIDINE [Concomitant]
     Active Substance: FAMOTIDINE
  5. MELATONIN [Concomitant]
     Active Substance: MELATONIN
  6. ASPIRIN [Concomitant]
     Active Substance: ASPIRIN
  7. LOSARTAN POTASSIUM [Concomitant]
     Active Substance: LOSARTAN POTASSIUM
  8. SIMVASTATIN [Concomitant]
     Active Substance: SIMVASTATIN
  9. METFORMIN HYDROCHLORIDE [Concomitant]
     Active Substance: METFORMIN HYDROCHLORIDE
  10. GABAPENTIN [Concomitant]
     Active Substance: GABAPENTIN
  11. HYDROCHLOROTHIAZIDE [Concomitant]
     Active Substance: HYDROCHLOROTHIAZIDE
  12. BACLOFEN [Concomitant]
     Active Substance: BACLOFEN
  13. CLOPIDOGREL [Concomitant]
     Active Substance: CLOPIDOGREL BISULFATE
  14. TRAMADOL HCL [Concomitant]
     Active Substance: TRAMADOL HYDROCHLORIDE
  15. OXYCODONE HYDROCHLORIDE [Concomitant]
     Active Substance: OXYCODONE HYDROCHLORIDE
  16. LEFLUNOMIDE [Concomitant]
     Active Substance: LEFLUNOMIDE
  17. AMITRIPTYLINE HYDROCHLORIDE [Concomitant]
     Active Substance: AMITRIPTYLINE HYDROCHLORIDE
  18. RANEXA [Concomitant]
     Active Substance: RANOLAZINE
  19. FENOFIBRATE [Concomitant]
     Active Substance: FENOFIBRATE
  20. BIOTIN [Concomitant]
     Active Substance: BIOTIN
  21. VITAMIN D3 [Concomitant]
     Active Substance: CHOLECALCIFEROL
  22. FISH OIL [Concomitant]
     Active Substance: FISH OIL
  23. METHOTREXATE [Concomitant]
     Active Substance: METHOTREXATE
  24. ALBUTEROL SULFATE [Concomitant]
     Active Substance: ALBUTEROL SULFATE
  25. B12 ACTIVE [Concomitant]
  26. CALCIUM CARBONATE\CHOLECALCIFEROL [Concomitant]
     Active Substance: CALCIUM CARBONATE\CHOLECALCIFEROL
  27. DEXILANT [Concomitant]
     Active Substance: DEXLANSOPRAZOLE
  28. DICLOFENAC SODIUM [Concomitant]
     Active Substance: DICLOFENAC SODIUM
  29. HYDROXYZINE HYDROCHLORIDE [Concomitant]
     Active Substance: HYDROXYZINE HYDROCHLORIDE
  30. LORAZEPAM [Concomitant]
     Active Substance: LORAZEPAM
  31. FOLIC ACID [Concomitant]
     Active Substance: FOLIC ACID
  32. DEXTROMETHORPHAN HYDROBROMIDE\GUAIFENESIN [Concomitant]
     Active Substance: DEXTROMETHORPHAN HYDROBROMIDE\GUAIFENESIN

REACTIONS (8)
  - Therapeutic response unexpected [Unknown]
  - Hair growth abnormal [Unknown]
  - Muscle twitching [Unknown]
  - Paraesthesia [Unknown]
  - Constipation [Recovered/Resolved]
  - Infection [Unknown]
  - Arthralgia [Unknown]
  - Pain in extremity [Unknown]

NARRATIVE: CASE EVENT DATE: 20200101
